FAERS Safety Report 23677801 (Version 1)
Quarter: 2024Q1

REPORT INFORMATION
  Report Type: Spontaneous
  Country: US (occurrence: None)
  Receive Date: 20240326
  Receipt Date: 20240326
  Transmission Date: 20240409
  Serious: Yes (Hospitalization)
  Sender: FDA-Public Use
  Company Number: None

PATIENT
  Sex: Female

DRUGS (3)
  1. OXBRYTA [Suspect]
     Active Substance: VOXELOTOR
     Indication: Sickle cell disease
     Dosage: FREQUENCY : DAILY;?
     Route: 048
     Dates: start: 202208
  2. PROCRIT SDV (1ML/VL) 40,000U/ML [Concomitant]
     Dosage: OTHER STRENGTH : ML/VL;?
  3. JADENU [Concomitant]
     Active Substance: DEFERASIROX

REACTIONS (4)
  - Viral infection [None]
  - Full blood count decreased [None]
  - Transfusion [None]
  - Therapy interrupted [None]
